FAERS Safety Report 13609408 (Version 2)
Quarter: 2017Q2

REPORT INFORMATION
  Report Type: Spontaneous
  Country: US (occurrence: US)
  Receive Date: 20170602
  Receipt Date: 20170605
  Transmission Date: 20170830
  Serious: No
  Sender: FDA-Public Use
  Company Number: US-PFIZER INC-3022380

PATIENT
  Age: 29 Year
  Sex: Male
  Weight: 77.11 kg

DRUGS (3)
  1. KETOROLAC TROMETHAMINE. [Suspect]
     Active Substance: KETOROLAC TROMETHAMINE
     Indication: HEADACHE
     Dosage: 30 MG, ONCE
     Route: 042
     Dates: start: 20150824, end: 20150824
  2. D5LRS [Concomitant]
     Indication: DEHYDRATION
     Dosage: 1 L, ONCE
     Route: 042
     Dates: start: 20150824, end: 20150824
  3. ONDANSETRON [Suspect]
     Active Substance: ONDANSETRON
     Indication: NAUSEA
     Dosage: 4 MG, ONCE
     Route: 042
     Dates: start: 20150824, end: 20150824

REACTIONS (1)
  - Pyrexia [Recovered/Resolved]

NARRATIVE: CASE EVENT DATE: 20150824
